FAERS Safety Report 11873783 (Version 3)
Quarter: 2016Q1

REPORT INFORMATION
  Report Type: Spontaneous
  Country: US (occurrence: US)
  Receive Date: 20151229
  Receipt Date: 20160311
  Transmission Date: 20160526
  Serious: No
  Sender: FDA-Public Use
  Company Number: US-TEVA-616827ACC

PATIENT
  Age: 42 Year
  Sex: Female
  Weight: 56.3 kg

DRUGS (2)
  1. PARAGARD T 380A [Suspect]
     Active Substance: COPPER
     Indication: CONTRACEPTION
     Dates: start: 20151130, end: 20151130
  2. PARAGARD T 380A [Suspect]
     Active Substance: COPPER
     Dates: start: 20151214

REACTIONS (1)
  - Procedural pain [Recovered/Resolved]

NARRATIVE: CASE EVENT DATE: 20151130
